FAERS Safety Report 11924083 (Version 1)
Quarter: 2016Q1

REPORT INFORMATION
  Report Type: Spontaneous
  Country: TR (occurrence: TR)
  Receive Date: 20160118
  Receipt Date: 20160118
  Transmission Date: 20160526
  Serious: Yes (Hospitalization, Other)
  Sender: FDA-Public Use
  Company Number: TR-JNJFOC-20160110439

PATIENT
  Age: 26 Year
  Sex: Male

DRUGS (1)
  1. INVEGA [Suspect]
     Active Substance: PALIPERIDONE
     Indication: UNEVALUABLE EVENT
     Route: 048

REACTIONS (2)
  - Akathisia [Unknown]
  - Suicide attempt [Unknown]
